FAERS Safety Report 5312008-2 (Version None)
Quarter: 2007Q2

REPORT INFORMATION
  Report Type: 
  Country: None (occurrence: None)
  Receive Date: 20070430
  Receipt Date: 20060718
  Transmission Date: 20071010
  Serious: No
  Sender: FDA-Public Use
  Company Number: 2006UW06198

PATIENT
  Age: 83 Year
  Sex: Female
  Weight: 168 kg

DRUGS (3)
  1. NEXIUM [Suspect]
     Indication: BARRETT'S OESOPHAGUS
     Route: 048
     Dates: start: 20060405
  2. DIAMOX [Concomitant]
  3. ATIVAN [Concomitant]

REACTIONS (3)
  - GLAUCOMA [None]
  - VISION BLURRED [None]
  - VISUAL DISTURBANCE [None]
